FAERS Safety Report 9925191 (Version 1)
Quarter: 2014Q1

REPORT INFORMATION
  Report Type: Spontaneous
  Country: US (occurrence: None)
  Receive Date: 20140225
  Receipt Date: 20140225
  Transmission Date: 20141002
  Serious: Yes (Life-Threatening)
  Sender: FDA-Public Use
  Company Number: None

PATIENT
  Age: 49 Year
  Sex: Female

DRUGS (4)
  1. TYSABRI [Suspect]
     Indication: MULTIPLE SCLEROSIS
     Dosage: 300 MG?EVERY 4 WEEKS?INTRAVENOUS
     Route: 042
  2. ESTRADIOL [Concomitant]
  3. ALLEGRA [Concomitant]
  4. PROBIOTIC [Concomitant]

REACTIONS (1)
  - Anaemia macrocytic [None]
